FAERS Safety Report 7996481-7 (Version None)
Quarter: 2011Q4

REPORT INFORMATION
  Report Type: 
  Country: None (occurrence: None)
  Receive Date: 20111220
  Receipt Date: 20111213
  Transmission Date: 20120403
  Serious: Yes (Hospitalization, Other)
  Sender: FDA-Public Use
  Company Number: US-ASTRAZENECA-2011SE58856

PATIENT
  Age: 48 Year
  Sex: Female

DRUGS (4)
  1. PRILOSEC [Suspect]
     Dosage: GENERIC
     Route: 048
  2. NEXIUM [Concomitant]
     Route: 048
  3. RANITIDINE [Concomitant]
  4. PRILOSEC [Suspect]
     Route: 048

REACTIONS (7)
  - DIARRHOEA [None]
  - FLATULENCE [None]
  - ABDOMINAL PAIN UPPER [None]
  - HIATUS HERNIA [None]
  - GASTROOESOPHAGEAL REFLUX DISEASE [None]
  - ABDOMINAL PAIN [None]
  - HEPATIC STEATOSIS [None]
